FAERS Safety Report 12328310 (Version 2)
Quarter: 2016Q2

REPORT INFORMATION
  Report Type: Report from Study
  Country: US (occurrence: US)
  Receive Date: 20160503
  Receipt Date: 20160513
  Transmission Date: 20160815
  Serious: Yes (Hospitalization)
  Sender: FDA-Public Use
  Company Number: US-ACTELION-A-NJ2016-135363

PATIENT
  Age: 77 Year
  Sex: Male

DRUGS (2)
  1. MACITENTAN [Suspect]
     Active Substance: MACITENTAN
     Indication: PULMONARY ARTERIAL HYPERTENSION
     Dosage: 10 MG, QD
     Route: 048
     Dates: start: 20141023
  2. OXYGEN. [Concomitant]
     Active Substance: OXYGEN

REACTIONS (4)
  - Spinal fracture [Unknown]
  - Road traffic accident [Unknown]
  - Cyanosis [Unknown]
  - Syncope [Unknown]
